FAERS Safety Report 4770938-4 (Version None)
Quarter: 2005Q3

REPORT INFORMATION
  Report Type: 
  Country: None (occurrence: None)
  Receive Date: 20050914
  Receipt Date: 20050901
  Transmission Date: 20060218
  Serious: Yes (Other)
  Sender: FDA-Public Use
  Company Number: 2005123539

PATIENT
  Age: 66 Year
  Sex: Male

DRUGS (2)
  1. GABAPENTIN [Suspect]
     Indication: PERIPHERAL SENSORIMOTOR NEUROPATHY
     Dosage: 900 MG (DAILY)
  2. FENTANYL [Concomitant]

REACTIONS (13)
  - ABASIA [None]
  - AREFLEXIA [None]
  - BLOOD CREATININE INCREASED [None]
  - BLOOD UREA INCREASED [None]
  - DRUG LEVEL INCREASED [None]
  - DRUG TOXICITY [None]
  - DYSARTHRIA [None]
  - DYSSTASIA [None]
  - HYPOAESTHESIA [None]
  - MENTAL IMPAIRMENT [None]
  - MUSCLE DISORDER [None]
  - MYOCLONUS [None]
  - SENSORY DISTURBANCE [None]
